FAERS Safety Report 14391824 (Version 1)
Quarter: 2018Q1

REPORT INFORMATION
  Report Type: Spontaneous
  Country: US (occurrence: US)
  Receive Date: 20180112
  Receipt Date: 20180112
  Transmission Date: 20180509
  Serious: Yes (Life-Threatening)
  Sender: FDA-Public Use
  Company Number: None

PATIENT
  Age: 62 Year
  Sex: Female
  Weight: 65.77 kg

DRUGS (3)
  1. DATSCAN [Concomitant]
     Active Substance: IODINE\IOFLUPANE I-123
  2. IODINE I-131 [Suspect]
     Active Substance: IODINE I-131
  3. ADREVIEW [Concomitant]
     Active Substance: IOBENGUANE I-123

REACTIONS (4)
  - Malaise [None]
  - Product substitution issue [None]
  - Vomiting [None]
  - Suspected counterfeit product [None]

NARRATIVE: CASE EVENT DATE: 20170102
